FAERS Safety Report 17483588 (Version 1)
Quarter: 2020Q1

REPORT INFORMATION
  Report Type: Spontaneous
  Country: US (occurrence: US)
  Receive Date: 20200218
  Receipt Date: 20200218
  Transmission Date: 20200409
  Serious: Yes (Hospitalization)
  Sender: FDA-Public Use
  Company Number: None

PATIENT
  Age: 78 Year
  Sex: Male
  Weight: 97.98 kg

DRUGS (1)
  1. VALSARTAN (VALSARTAN 320MG TAB) [Suspect]
     Active Substance: VALSARTAN
     Indication: HYPERTENSION
     Route: 048
     Dates: start: 20131104, end: 20190204

REACTIONS (1)
  - Angioedema [None]

NARRATIVE: CASE EVENT DATE: 20190204
